FAERS Safety Report 6213697-0 (Version None)
Quarter: 2009Q2

REPORT INFORMATION
  Report Type: 
  Country: None (occurrence: None)
  Receive Date: 20090603
  Receipt Date: 20090526
  Transmission Date: 20091009
  Serious: Yes (Other)
  Sender: FDA-Public Use
  Company Number: PHHY2009BR20909

PATIENT
  Sex: Female
  Weight: 74 kg

DRUGS (9)
  1. DIOVAN [Suspect]
     Dates: start: 20080501
  2. SANDRENA [Concomitant]
     Indication: HORMONE THERAPY
     Dosage: ONE SACHE AT NIGHT
     Route: 061
  3. TEBONIN [Concomitant]
     Indication: MEMORY IMPAIRMENT
     Dosage: ONE TABLET (120 MG) DAILY
     Route: 048
     Dates: start: 20081101
  4. GINKGO BILOBA [Concomitant]
     Indication: MEMORY IMPAIRMENT
     Dosage: 40 MG, DAILY
     Route: 048
     Dates: start: 20090401
  5. SIMVASTATIN [Concomitant]
     Indication: BLOOD CHOLESTEROL
     Dosage: 20 MG, DAILY
     Route: 048
     Dates: start: 20040501
  6. LOPID [Concomitant]
     Indication: BLOOD TRIGLYCERIDES
     Dosage: 600 MG, DAILY
     Route: 048
     Dates: start: 20040501
  7. SELOZOK [Concomitant]
     Indication: CARDIAC DISORDER
     Dosage: 50 MG, DAILY
     Route: 048
     Dates: start: 20080501
  8. RASILEZ [Concomitant]
     Indication: CARDIAC DISORDER
     Dosage: HALF TABLET (300 MG) IN THE AFTERNOON
     Route: 048
     Dates: start: 20090101
  9. PIASCLEDINE [Concomitant]
     Indication: OSTEOARTHRITIS
     Dosage: 300 MG, DAILY
     Dates: start: 20090507

REACTIONS (5)
  - BLOOD PRESSURE ABNORMAL [None]
  - BLOOD PRESSURE INCREASED [None]
  - DIZZINESS [None]
  - HEADACHE [None]
  - TACHYCARDIA [None]
